FAERS Safety Report 9231364 (Version 2)
Quarter: 2013Q2

REPORT INFORMATION
  Report Type: Spontaneous
  Country: US (occurrence: US)
  Receive Date: 20130412
  Receipt Date: 20130502
  Transmission Date: 20140414
  Serious: Yes (Other)
  Sender: FDA-Public Use
  Company Number: US-RB-052361-13

PATIENT
  Age: 60 Year
  Sex: Female
  Weight: 58 kg

DRUGS (3)
  1. MUCINEX MAXIMUM STRENGTH [Suspect]
     Indication: CHEST DISCOMFORT
     Dosage: TAKING 1 TABLET EVERY 12 HOURS AND STOPPED TAKING THEM AFTER 4 DOSES.
     Route: 048
     Dates: start: 20130305
  2. MUCINEX MAXIMUM STRENGTH [Suspect]
     Indication: COUGH
     Dosage: TOOK TABLET AT 8:00 A.M.ON 28-MAR-2013 AND THEN HER SECOND DOSE TODAY AT 2:00 A.M. ON 29-MAR-2013.
     Route: 048
     Dates: start: 20130328
  3. CRESTOR [Concomitant]
     Indication: PRODUCT USED FOR UNKNOWN INDICATION

REACTIONS (13)
  - Drug hypersensitivity [Unknown]
  - Bronchitis [Unknown]
  - Angioedema [Unknown]
  - Foreign body [Unknown]
  - Swollen tongue [Recovering/Resolving]
  - Tongue oedema [Unknown]
  - Erythema [Unknown]
  - Dysphagia [Unknown]
  - Throat tightness [Unknown]
  - Pharyngeal oedema [Unknown]
  - Rash pruritic [Recovered/Resolved]
  - Blister [Recovered/Resolved]
  - Rash [Recovered/Resolved]
